FAERS Safety Report 25609932 (Version 2)
Quarter: 2025Q3

REPORT INFORMATION
  Report Type: Spontaneous
  Country: EU (occurrence: EU)
  Receive Date: 20250728
  Receipt Date: 20250829
  Transmission Date: 20251020
  Serious: Yes (Hospitalization)
  Sender: CELLTRION
  Company Number: None

PATIENT

DRUGS (1)
  1. VEGZELMA [Suspect]
     Active Substance: BEVACIZUMAB-ADCD
     Indication: Glioblastoma
     Dosage: 10 MG/KG, 1/WEEK
     Route: 042
     Dates: start: 20241205, end: 20250226

REACTIONS (4)
  - Condition aggravated [Recovering/Resolving]
  - Wound complication [Recovering/Resolving]
  - Impaired healing [Recovering/Resolving]
  - Intentional product use issue [Unknown]

NARRATIVE: CASE EVENT DATE: 20241212
